FAERS Safety Report 5787044-2 (Version None)
Quarter: 2008Q2

REPORT INFORMATION
  Report Type: 
  Country: None (occurrence: None)
  Receive Date: 20080618
  Receipt Date: 20070612
  Transmission Date: 20081010
  Serious: Yes (Other)
  Sender: FDA-Public Use
  Company Number: 200619612US

PATIENT
  Age: 43 Year
  Sex: Male

DRUGS (6)
  1. LANTUS [Suspect]
     Indication: TYPE 1 DIABETES MELLITUS
     Dosage: INJ
     Dates: end: 20061001
  2. LANTUS [Suspect]
     Indication: TYPE 1 DIABETES MELLITUS
     Dosage: INJ
     Dates: start: 20061001
  3. LANTUS [Suspect]
     Indication: TYPE 1 DIABETES MELLITUS
     Dates: end: 20070101
  4. OPTICLIK [Suspect]
     Indication: TYPE 1 DIABETES MELLITUS
     Dates: start: 20061001, end: 20070101
  5. NOVOLOG [Concomitant]
  6. NAPROXEN (NAPROSYN /00256201/) [Concomitant]

REACTIONS (4)
  - BLOOD GLUCOSE INCREASED [None]
  - DRUG INEFFECTIVE [None]
  - GLYCOSYLATED HAEMOGLOBIN INCREASED [None]
  - HYPERGLYCAEMIA [None]
